FAERS Safety Report 15866974 (Version 1)
Quarter: 2019Q1

REPORT INFORMATION
  Report Type: Spontaneous
  Country: US (occurrence: US)
  Receive Date: 20190102
  Receipt Date: 20190102
  Transmission Date: 20190417
  Serious: No
  Sender: FDA-Public Use
  Company Number: None

PATIENT
  Age: 65 Year
  Sex: Female

DRUGS (1)
  1. HUMIRA [Suspect]
     Active Substance: ADALIMUMAB
     Indication: PSORIASIS
     Dosage: ?          OTHER DOSE:40/0.8 MG/ML;OTHER FREQUENCY:WEEKLY TO BIWEEKLY;?
     Route: 058
     Dates: start: 20181214

REACTIONS (2)
  - Skin warm [None]
  - Peripheral swelling [None]

NARRATIVE: CASE EVENT DATE: 20181214
